FAERS Safety Report 12265243 (Version 1)
Quarter: 2016Q2

REPORT INFORMATION
  Report Type: Spontaneous
  Country: US (occurrence: US)
  Receive Date: 20160413
  Receipt Date: 20160413
  Transmission Date: 20160815
  Serious: No
  Sender: FDA-Public Use
  Company Number: US-MDT-ADR-2016-00670

PATIENT
  Age: 19 Year
  Sex: Male

DRUGS (3)
  1. BACLOFEN, UNKNOWN [Suspect]
     Active Substance: BACLOFEN
     Dosage: 950.5MCG/DAY
     Route: 037
  2. COMPOUNDED BACLOFEN [Suspect]
     Active Substance: BACLOFEN
     Dosage: 950MCG/DAY
     Route: 037
  3. LIORESAL [Suspect]
     Active Substance: BACLOFEN
     Dosage: 2% INCREASE 31.7 MCG/ HR
     Route: 037

REACTIONS (1)
  - Incorrect drug administration rate [Recovered/Resolved]
